FAERS Safety Report 7549788-1 (Version None)
Quarter: 2011Q2

REPORT INFORMATION
  Report Type: 
  Country: None (occurrence: None)
  Receive Date: 20110615
  Receipt Date: 20060905
  Transmission Date: 20111010
  Serious: Yes (Hospitalization, Other)
  Sender: FDA-Public Use
  Company Number: PHFR2006IE02068

PATIENT
  Sex: Male

DRUGS (2)
  1. CLOZAPINE [Suspect]
     Indication: SCHIZOPHRENIA
     Dosage: 625 MG, QD
     Route: 048
     Dates: start: 19961119
  2. LITHIUM CARBONATE [Suspect]

REACTIONS (7)
  - NEOPLASM MALIGNANT [None]
  - SKIN ULCER [None]
  - LETHARGY [None]
  - DYSPHAGIA [None]
  - WEIGHT DECREASED [None]
  - DEHYDRATION [None]
  - GASTROINTESTINAL DISORDER [None]
